FAERS Safety Report 5105022-3 (Version None)
Quarter: 2006Q3

REPORT INFORMATION
  Report Type: 
  Country: None (occurrence: None)
  Receive Date: 20060911
  Receipt Date: 20060828
  Transmission Date: 20061208
  Serious: Yes (Other)
  Sender: FDA-Public Use
  Company Number: 2006095736

PATIENT
  Sex: Male

DRUGS (2)
  1. BEXTRA [Suspect]
     Indication: DRUG USE FOR UNKNOWN INDICATION
     Dosage: 20 MG, ORAL
     Route: 048
  2. SOTALOL (SOTALOL) [Concomitant]

REACTIONS (3)
  - DRUG ERUPTION [None]
  - DRUG HYPERSENSITIVITY [None]
  - RASH [None]
